FAERS Safety Report 11130030 (Version 1)
Quarter: 2015Q2

REPORT INFORMATION
  Report Type: Spontaneous
  Country: DE (occurrence: DE)
  Receive Date: 20150521
  Receipt Date: 20150521
  Transmission Date: 20150821
  Serious: Yes (Other)
  Sender: FDA-Public Use
  Company Number: DE-MYLANLABS-2015M1016027

PATIENT

DRUGS (2)
  1. PREDNISOLON                        /00016201/ [Concomitant]
     Active Substance: PREDNISOLONE
     Indication: CHRONIC OBSTRUCTIVE PULMONARY DISEASE
     Dosage: UNK (WHEN NEEDED)
     Route: 048
  2. VALSARTAN DURA 80 MG FILMTABLETTEN [Suspect]
     Active Substance: VALSARTAN
     Indication: HYPERTENSION
     Dosage: UNK (1 TABLET IN THE EVENING, DOSAGE FOR THE FIRST 4 WEEKS: 40 MG/DAY)
     Route: 048
     Dates: start: 2015

REACTIONS (6)
  - Dyspnoea [Not Recovered/Not Resolved]
  - Effusion [Not Recovered/Not Resolved]
  - Muscular weakness [Recovered/Resolved]
  - Myalgia [Not Recovered/Not Resolved]
  - Skin atrophy [Not Recovered/Not Resolved]
  - Dizziness [Not Recovered/Not Resolved]

NARRATIVE: CASE EVENT DATE: 20150217
